FAERS Safety Report 4648000-0 (Version None)
Quarter: 2005Q2

REPORT INFORMATION
  Report Type: 
  Country: None (occurrence: None)
  Receive Date: 20050331
  Receipt Date: 20050118
  Transmission Date: 20051028
  Serious: No
  Sender: FDA-Public Use
  Company Number: 05P-163-0287053-00

PATIENT
  Age: 75 Year
  Sex: Female
  Weight: 77.1115 kg

DRUGS (9)
  1. HUMIRA [Suspect]
     Indication: RHEUMATOID ARTHRITIS
     Dosage: 40 MG, 1 IN 2 WK, SUBCUTANEOUS
     Route: 058
     Dates: start: 20040729
  2. LISINOPRIL [Concomitant]
  3. ESOMEPRAZOLE [Concomitant]
  4. SERTRALINE HYDROCHLORIDE [Concomitant]
  5. ASAGAN [Concomitant]
  6. FOLINIC ACID [Concomitant]
  7. METHOTREXATE [Concomitant]
  8. PREDNISONE [Concomitant]
  9. LATANOPROST [Concomitant]

REACTIONS (1)
  - COUGH [None]
